FAERS Safety Report 23250408 (Version 2)
Quarter: 2024Q2

REPORT INFORMATION
  Report Type: Report from Study
  Country: US (occurrence: US)
  Receive Date: 20231201
  Receipt Date: 20240625
  Transmission Date: 20240716
  Serious: Yes (Other)
  Sender: FDA-Public Use
  Company Number: US-ABBVIE-5520117

PATIENT
  Sex: Female

DRUGS (1)
  1. HUMIRA [Suspect]
     Active Substance: ADALIMUMAB
     Indication: Product used for unknown indication
     Route: 058

REACTIONS (6)
  - Seizure [Unknown]
  - Cyst [Unknown]
  - Pain [Unknown]
  - COVID-19 [Unknown]
  - Migraine [Unknown]
  - Arthropathy [Unknown]

NARRATIVE: CASE EVENT DATE: 19930101
